FAERS Safety Report 11852784 (Version 3)
Quarter: 2016Q1

REPORT INFORMATION
  Report Type: Spontaneous
  Country: HU (occurrence: HU)
  Receive Date: 20151218
  Receipt Date: 20160204
  Transmission Date: 20160526
  Serious: Yes (Death, Other)
  Sender: FDA-Public Use
  Company Number: HU-BAYER-2015-469942

PATIENT
  Age: 80 Year
  Sex: Male

DRUGS (9)
  1. FURON [Concomitant]
     Active Substance: FUROSEMIDE
     Dosage: 1 DF, QD
  2. VEROSPIRON [Concomitant]
     Active Substance: SPIRONOLACTONE
     Dosage: 25 MG, QD
  3. TRITACE [Concomitant]
     Active Substance: RAMIPRIL
     Dosage: 2.5 MG, BID
  4. XOFIGO [Suspect]
     Active Substance: RADIUM RA-223 DICHLORIDE
     Indication: PROSTATE CANCER STAGE IV
     Dosage: UNK
     Route: 042
     Dates: start: 20151028
  5. XOFIGO [Suspect]
     Active Substance: RADIUM RA-223 DICHLORIDE
     Indication: METASTASES TO BONE
  6. CONTROLOC [Concomitant]
     Active Substance: PANTOPRAZOLE SODIUM
     Dosage: 40 MG, BID
  7. BETALOC [Concomitant]
     Active Substance: METOPROLOL TARTRATE
     Dosage: 12.5 MG, BID
  8. KALDYUM [Concomitant]
     Active Substance: POTASSIUM CHLORIDE
     Dosage: 2 DF
  9. FENTANYL. [Concomitant]
     Active Substance: FENTANYL
     Dosage: 200MG

REACTIONS (4)
  - Dyspnoea [Fatal]
  - Asthenia [Not Recovered/Not Resolved]
  - Pancytopenia [Not Recovered/Not Resolved]
  - Cardiopulmonary failure [Fatal]

NARRATIVE: CASE EVENT DATE: 2015
